FAERS Safety Report 10897528 (Version 3)
Quarter: 2016Q1

REPORT INFORMATION
  Report Type: Spontaneous
  Country: US (occurrence: US)
  Receive Date: 20150309
  Receipt Date: 20160105
  Transmission Date: 20160525
  Serious: Yes (Hospitalization)
  Sender: FDA-Public Use
  Company Number: US-BAYER-2015-032491

PATIENT
  Age: 35 Year
  Sex: Female

DRUGS (1)
  1. MIRENA [Suspect]
     Active Substance: LEVONORGESTREL
     Indication: MENORRHAGIA
     Dosage: 20 MCG/24HR, CONT
     Route: 015
     Dates: start: 20090731, end: 20130507

REACTIONS (8)
  - Genital haemorrhage [None]
  - Abdominal pain lower [None]
  - Menorrhagia [None]
  - Procedural pain [None]
  - Injury [None]
  - Device difficult to use [None]
  - Embedded device [None]
  - Device issue [None]

NARRATIVE: CASE EVENT DATE: 201302
